FAERS Safety Report 6981882-6 (Version None)
Quarter: 2010Q3

REPORT INFORMATION
  Report Type: 
  Country: None (occurrence: None)
  Receive Date: 20100914
  Receipt Date: 20091025
  Transmission Date: 20110219
  Serious: Yes (Other)
  Sender: FDA-Public Use
  Company Number: US-PFIZER INC-2009289174

PATIENT
  Sex: Female

DRUGS (9)
  1. LYRICA [Suspect]
     Dosage: 50 MG, 2X/DAY
     Route: 048
     Dates: start: 20091013
  2. VITAMIN B-12 [Concomitant]
     Dosage: 15 MG, 1X/DAY
  3. AMLODIPINE [Concomitant]
     Dosage: 5 MG, UNK
  4. LISINOPRIL [Concomitant]
     Dosage: 10 MG, UNK
  5. ACETYLSALICYLIC ACID [Concomitant]
     Dosage: 81 MG, 1X/DAY
  6. VITAMIN D [Concomitant]
     Dosage: UNK
  7. ASCORBIC ACID [Concomitant]
     Dosage: 500 MG, 1X/DAY
  8. COD-LIVER OIL [Concomitant]
     Dosage: 8 MG, UNK
  9. FISH OIL [Concomitant]
     Dosage: 12 MG, 1X/DAY

REACTIONS (2)
  - HYPOAESTHESIA [None]
  - MUSCULAR WEAKNESS [None]
